FAERS Safety Report 18466671 (Version 1)
Quarter: 2020Q4

REPORT INFORMATION
  Report Type: Spontaneous
  Country: DE (occurrence: DE)
  Receive Date: 20201105
  Receipt Date: 20201105
  Transmission Date: 20210114
  Serious: Yes (Other)
  Sender: FDA-Public Use
  Company Number: DE-HIKMA PHARMACEUTICALS USA INC.-DE-H14001-20-04964

PATIENT
  Age: 71 Year
  Sex: Male

DRUGS (6)
  1. VANCOMYCIN [Suspect]
     Active Substance: VANCOMYCIN
     Indication: STAPHYLOCOCCAL INFECTION
     Route: 042
  2. VANCOMYCIN [Suspect]
     Active Substance: VANCOMYCIN
     Indication: VARICELLA ZOSTER VIRUS INFECTION
  3. CIPROFLOXACIN. [Suspect]
     Active Substance: CIPROFLOXACIN
     Indication: STAPHYLOCOCCAL INFECTION
     Route: 042
  4. PIPERACILLIN/COMBACTAM [Suspect]
     Active Substance: PIPERACILLIN\SULBACTAM
     Indication: VARICELLA ZOSTER VIRUS INFECTION
  5. CIPROFLOXACIN. [Suspect]
     Active Substance: CIPROFLOXACIN
     Indication: VARICELLA ZOSTER VIRUS INFECTION
  6. PIPERACILLIN/COMBACTAM [Suspect]
     Active Substance: PIPERACILLIN\SULBACTAM
     Indication: STAPHYLOCOCCAL INFECTION
     Route: 042

REACTIONS (1)
  - Drug tolerance [Unknown]
